FAERS Safety Report 7689719-7 (Version None)
Quarter: 2011Q3

REPORT INFORMATION
  Report Type: 
  Country: None (occurrence: None)
  Receive Date: 20110817
  Receipt Date: 20110816
  Transmission Date: 20111222
  Serious: Yes (Disabling, Other)
  Sender: FDA-Public Use
  Company Number: DE-BAYER-2011-073492

PATIENT

DRUGS (1)
  1. AVELOX [Suspect]

REACTIONS (1)
  - BLINDNESS [None]
